FAERS Safety Report 7301540-8 (Version None)
Quarter: 2011Q1

REPORT INFORMATION
  Report Type: 
  Country: None (occurrence: None)
  Receive Date: 20110218
  Receipt Date: 20110210
  Transmission Date: 20110831
  Serious: Yes (Hospitalization)
  Sender: FDA-Public Use
  Company Number: US-AMGEN-USASP2011008166

PATIENT
  Age: 37 Year
  Sex: Female

DRUGS (3)
  1. ENBREL [Suspect]
     Indication: FIBROMYALGIA
  2. ENBREL [Suspect]
     Indication: PSORIATIC ARTHROPATHY
     Dosage: 50 MG, QWK
     Dates: start: 20060523, end: 20100101
  3. METHOTREXATE [Concomitant]
     Dates: start: 20101001

REACTIONS (4)
  - OSTEOARTHRITIS [None]
  - MEDICAL DEVICE REMOVAL [None]
  - PAIN [None]
  - WHEELCHAIR USER [None]
